FAERS Safety Report 23104063 (Version 2)
Quarter: 2023Q4

REPORT INFORMATION
  Report Type: Spontaneous
  Country: CN (occurrence: CN)
  Receive Date: 20231025
  Receipt Date: 20231026
  Transmission Date: 20240110
  Serious: Yes (Death, Life-Threatening, Hospitalization, Other)
  Sender: FDA-Public Use
  Company Number: CN-MLMSERVICE-20231013-4603813-1

PATIENT
  Age: 56 Year
  Sex: Male

DRUGS (8)
  1. METHYLPREDNISOLONE [Suspect]
     Active Substance: METHYLPREDNISOLONE
     Indication: Immunosuppressant drug therapy
     Dosage: UNK
     Dates: start: 202205
  2. TACROLIMUS [Suspect]
     Active Substance: TACROLIMUS
     Indication: Immunosuppressant drug therapy
     Dosage: UNK
     Dates: start: 202205
  3. CYCLOSPORINE [Suspect]
     Active Substance: CYCLOSPORINE
     Indication: Immunosuppressant drug therapy
     Dosage: UNK
     Dates: start: 202205
  4. PREDNISOLONE [Suspect]
     Active Substance: PREDNISOLONE
     Indication: Immunosuppressant drug therapy
     Dosage: 0.5 MG/KG, DAILY
     Dates: start: 202205, end: 202205
  5. PREDNISOLONE [Suspect]
     Active Substance: PREDNISOLONE
     Dosage: 0.25 MG/KG, DAILY (GRADUAL REDUCTION)
     Dates: start: 202205
  6. ISONIAZID [Concomitant]
     Active Substance: ISONIAZID
     Indication: Tuberculosis
     Dosage: 300 MG, DAILY
     Route: 048
     Dates: start: 202205, end: 202208
  7. AMPHOTERICIN B [Concomitant]
     Active Substance: AMPHOTERICIN B
     Indication: Antifungal treatment
     Dosage: NEBULIZED
     Dates: start: 202205
  8. ISAVUCONAZOLE [Concomitant]
     Active Substance: ISAVUCONAZOLE
     Indication: Antifungal treatment
     Dosage: UNK
     Route: 048
     Dates: start: 202205

REACTIONS (7)
  - Post transplant lymphoproliferative disorder [Fatal]
  - Leukopenia [Fatal]
  - Cytomegalovirus infection [Fatal]
  - Corynebacterium infection [Fatal]
  - Cardio-respiratory arrest [Fatal]
  - Pseudomonas infection [Fatal]
  - Shock [Fatal]

NARRATIVE: CASE EVENT DATE: 20220101
